FAERS Safety Report 5856823-5 (Version None)
Quarter: 2008Q3

REPORT INFORMATION
  Report Type: 
  Country: None (occurrence: None)
  Receive Date: 20080825
  Receipt Date: 20080820
  Transmission Date: 20090109
  Serious: Yes (Hospitalization)
  Sender: FDA-Public Use
  Company Number: JP-SANOFI-SYNTHELABO-A01200807785

PATIENT
  Age: 28 Year
  Sex: Male
  Weight: 55 kg

DRUGS (15)
  1. ALBUMIN (HUMAN) [Concomitant]
     Dosage: UNK
     Dates: start: 20080610, end: 20080610
  2. HYOSCINE HBR HYT [Concomitant]
     Dosage: UNK
     Dates: start: 20080610, end: 20080610
  3. DEXAMETHASONE SODIUM PHOSPHATE [Concomitant]
     Dosage: UNK
     Dates: start: 20080610, end: 20080610
  4. KYTRIL [Concomitant]
     Dosage: UNK
     Dates: start: 20080610, end: 20080610
  5. OXYCONTIN [Concomitant]
     Dosage: UNK
  6. LANSOPRAZOLE [Concomitant]
     Dosage: UNK
  7. BIOFERMIN R [Concomitant]
     Dosage: UNK
  8. GABAPENTIN [Concomitant]
     Dosage: UNK
  9. LOXONIN [Concomitant]
     Dosage: UNK
  10. VOLTAREN [Concomitant]
     Dosage: UNK
     Dates: start: 20061101
  11. IRINOTECAN HCL [Suspect]
     Dosage: UNK
     Route: 042
     Dates: start: 20080419, end: 20080419
  12. LEUCOVORIN CALCIUM [Suspect]
     Dosage: UNK
     Route: 041
     Dates: start: 20080623, end: 20080624
  13. FLUOROURACIL [Suspect]
     Dosage: UNK
     Route: 042
     Dates: start: 20080623, end: 20080624
  14. ELPLAT [Suspect]
     Indication: COLON CANCER METASTATIC
     Dosage: UNK
     Route: 040
     Dates: start: 20080623, end: 20080623
  15. AVASTIN [Suspect]
     Route: 041
     Dates: start: 20080610, end: 20080610

REACTIONS (3)
  - LARGE INTESTINE PERFORATION [None]
  - RECTAL ULCER [None]
  - TUMOUR HAEMORRHAGE [None]
